FAERS Safety Report 4384209-1 (Version None)
Quarter: 2004Q2

REPORT INFORMATION
  Report Type: 
  Country: None (occurrence: None)
  Receive Date: 20040621
  Receipt Date: 20040603
  Transmission Date: 20050107
  Serious: Yes (Disabling)
  Sender: FDA-Public Use
  Company Number: 24143

PATIENT
  Age: 52 Year
  Sex: Female

DRUGS (3)
  1. ALDARA [Suspect]
     Indication: CONDYLOMA ACUMINATUM
     Dosage: 3 IN 1 WEEK(S), TOPICAL
     Route: 061
     Dates: start: 20040514, end: 20040524
  2. ESKALITH [Concomitant]
  3. EFFEXOR [Concomitant]

REACTIONS (7)
  - ABASIA [None]
  - BONE PAIN [None]
  - IMPAIRED SELF-CARE [None]
  - INFLUENZA LIKE ILLNESS [None]
  - MUSCLE SPASMS [None]
  - MUSCULAR WEAKNESS [None]
  - MYALGIA [None]
